FAERS Safety Report 4357380-5 (Version None)
Quarter: 2004Q2

REPORT INFORMATION
  Report Type: 
  Country: None (occurrence: None)
  Receive Date: 20040513
  Receipt Date: 20040505
  Transmission Date: 20050107
  Serious: Yes (Hospitalization)
  Sender: FDA-Public Use
  Company Number: 200411019DE

PATIENT
  Age: 59 Year
  Sex: Male
  Weight: 63 kg

DRUGS (6)
  1. ARAVA [Suspect]
     Indication: RHEUMATOID ARTHRITIS
     Route: 048
     Dates: start: 19980101, end: 20040217
  2. VIOXX [Suspect]
     Indication: ARTHRALGIA
     Route: 048
     Dates: start: 19980101
  3. OS-CAL D [Concomitant]
     Indication: OSTEOPOROSIS
     Route: 048
     Dates: start: 19980101
  4. FOSAMAX [Concomitant]
     Indication: OSTEOPOROSIS
     Route: 048
     Dates: start: 19980101, end: 20040205
  5. PREDNISOLONE [Concomitant]
     Indication: RHEUMATOID ARTHRITIS
     Route: 048
     Dates: start: 19980101
  6. TRAMADOLOR [Concomitant]
     Indication: PAIN
     Route: 048
     Dates: start: 19980101

REACTIONS (2)
  - CATARACT [None]
  - HEPATIC ENZYME INCREASED [None]
